FAERS Safety Report 6668652-3 (Version None)
Quarter: 2010Q2

REPORT INFORMATION
  Report Type: 
  Country: None (occurrence: None)
  Receive Date: 20100401
  Receipt Date: 20100316
  Transmission Date: 20101027
  Serious: Yes (Hospitalization)
  Sender: FDA-Public Use
  Company Number: 2010AL001807

PATIENT
  Age: 42 Year
  Sex: Male

DRUGS (3)
  1. DICLOFENAC SODIUM [Suspect]
     Indication: PROCEDURAL PAIN
     Dosage: 50 MG, TID; PO
     Route: 048
     Dates: start: 20100109, end: 20100127
  2. LANSOPRAZOLE [Concomitant]
  3. MYOZYME [Concomitant]

REACTIONS (2)
  - GALLBLADDER OEDEMA [None]
  - LIVER FUNCTION TEST ABNORMAL [None]
